FAERS Safety Report 4539520-8 (Version None)
Quarter: 2004Q4

REPORT INFORMATION
  Report Type: 
  Country: None (occurrence: None)
  Receive Date: 20041222
  Receipt Date: 20041208
  Transmission Date: 20050328
  Serious: Yes (Other)
  Sender: FDA-Public Use
  Company Number: 2004-BP-13393BP

PATIENT
  Age: 87 Year
  Sex: Male

DRUGS (1)
  1. FLOMAX [Suspect]
     Dosage: 0.4 MG (0.4 MG), SEE IMAGE
     Dates: start: 20020101

REACTIONS (3)
  - CARCINOMA [None]
  - MOUTH ULCERATION [None]
  - PHARYNGEAL ULCERATION [None]
